FAERS Safety Report 9027698 (Version 11)
Quarter: 2013Q2

REPORT INFORMATION
  Report Type: Spontaneous
  Country: US (occurrence: US)
  Receive Date: 20130124
  Receipt Date: 20130628
  Transmission Date: 20140414
  Serious: No
  Sender: FDA-Public Use
  Company Number: US-009507513-1301USA007773

PATIENT
  Age: 51 Year
  Sex: Female

DRUGS (2)
  1. PEGINTRON [Suspect]
     Indication: HEPATITIS C
     Dosage: UNK, REDIPEN
     Dates: start: 20130111
  2. REBETOL [Suspect]
     Indication: HEPATITIS C
     Dosage: UNK
     Route: 048
     Dates: start: 20130111

REACTIONS (25)
  - Back pain [Unknown]
  - Bone pain [Recovering/Resolving]
  - Headache [Unknown]
  - Influenza like illness [Recovering/Resolving]
  - Injection site reaction [Unknown]
  - Pruritus [Unknown]
  - Injection site reaction [Unknown]
  - Rash [Unknown]
  - Pruritus [Unknown]
  - Injection site reaction [Unknown]
  - Injection site reaction [Unknown]
  - Dry skin [Unknown]
  - Dry mouth [Unknown]
  - Injection site reaction [Unknown]
  - Rash [Unknown]
  - Injection site reaction [Unknown]
  - Pruritus [Unknown]
  - Drug dose omission [Unknown]
  - Injury [Unknown]
  - Accidental exposure to product [Unknown]
  - Injection site erythema [Unknown]
  - Injection site reaction [Unknown]
  - Laceration [Unknown]
  - Fatigue [Unknown]
  - Depression [Unknown]
